FAERS Safety Report 7194860-1 (Version None)
Quarter: 2010Q4

REPORT INFORMATION
  Report Type: 
  Country: None (occurrence: None)
  Receive Date: 20101223
  Receipt Date: 20100920
  Transmission Date: 20110411
  Serious: No
  Sender: FDA-Public Use
  Company Number: US-AMGEN-KDL439527

PATIENT

DRUGS (4)
  1. ENBREL [Suspect]
     Indication: RHEUMATOID ARTHRITIS
     Dosage: 25 MG, 2 TIMES/WK
     Dates: start: 20080601, end: 20100901
  2. PREDNISONE [Concomitant]
     Dosage: UNK UNK, UNK
  3. GOLIMUMAB [Concomitant]
     Dosage: UNK UNK, UNK
  4. SERTRALINE HYDROCHLORIDE [Concomitant]

REACTIONS (1)
  - DERMATITIS PSORIASIFORM [None]
